FAERS Safety Report 24633776 (Version 1)
Quarter: 2024Q4

REPORT INFORMATION
  Report Type: Spontaneous
  Country: US (occurrence: US)
  Receive Date: 20241118
  Receipt Date: 20241118
  Transmission Date: 20250115
  Serious: No
  Sender: AMGEN
  Company Number: US-AMGEN-USASP2024223569

PATIENT
  Sex: Female

DRUGS (2)
  1. RIABNI [Suspect]
     Active Substance: RITUXIMAB-ARRX
     Indication: Encephalitis autoimmune
     Dosage: UNK
     Route: 065
  2. RIABNI [Suspect]
     Active Substance: RITUXIMAB-ARRX
     Indication: Off label use

REACTIONS (2)
  - Drug ineffective for unapproved indication [Unknown]
  - Off label use [Unknown]
